FAERS Safety Report 5682172-4 (Version None)
Quarter: 2008Q1

REPORT INFORMATION
  Report Type: 
  Country: None (occurrence: None)
  Receive Date: 20080325
  Receipt Date: 20080312
  Transmission Date: 20080703
  Serious: Yes (Life-Threatening, Hospitalization)
  Sender: FDA-Public Use
  Company Number: 2008023495

PATIENT
  Age: 84 Year
  Sex: Female
  Weight: 56 kg

DRUGS (8)
  1. DALTEPARIN SODIUM [Suspect]
     Indication: PULMONARY EMBOLISM
     Dosage: (10000 I.U.), SUBCUTANEOUS
     Route: 058
     Dates: start: 20080228, end: 20080228
  2. DILTIAZEM HYDROCHLORIDE [Concomitant]
  3. BENDROFLUMETHIAZIDE (BENDROFLUMETHIAZIDE) [Concomitant]
  4. CITALOPRAM (CITALOPRAM) [Concomitant]
  5. DESLORATADINE (DESLORATADINE) [Concomitant]
  6. MEGESTROL ACETATE [Concomitant]
  7. NEBIVOLOL HCL [Concomitant]
  8. PERINDOPRIL ERBUMINE [Concomitant]

REACTIONS (6)
  - ALANINE AMINOTRANSFERASE INCREASED [None]
  - BLOOD BICARBONATE INCREASED [None]
  - BLOOD SODIUM DECREASED [None]
  - HAEMOGLOBIN DECREASED [None]
  - HYPERTENSION [None]
  - RECTAL HAEMORRHAGE [None]
